FAERS Safety Report 10405818 (Version 1)
Quarter: 2014Q3

REPORT INFORMATION
  Report Type: Spontaneous
  Country: US (occurrence: US)
  Receive Date: 20140825
  Receipt Date: 20140825
  Transmission Date: 20150326
  Serious: No
  Sender: FDA-Public Use
  Company Number: US-TEVA-504277USA

PATIENT

DRUGS (2)
  1. NUVIGIL [Suspect]
     Active Substance: ARMODAFINIL
     Indication: PRODUCT USED FOR UNKNOWN INDICATION
  2. NUVIGIL [Suspect]
     Active Substance: ARMODAFINIL

REACTIONS (5)
  - Hot flush [Unknown]
  - Palpitations [Unknown]
  - Drug ineffective [Unknown]
  - Bundle branch block [Unknown]
  - Dyspnoea [Unknown]
